FAERS Safety Report 5063181-5 (Version None)
Quarter: 2006Q3

REPORT INFORMATION
  Report Type: 
  Country: None (occurrence: None)
  Receive Date: 20060703
  Receipt Date: 20051028
  Transmission Date: 20061208
  Serious: No
  Sender: FDA-Public Use
  Company Number: 2005S1010742

PATIENT
  Age: 47 Year
  Sex: Male

DRUGS (7)
  1. CLOZAPINE [Suspect]
     Indication: SCHIZOPHRENIA
     Dosage: 100 MG TID PO
     Route: 048
     Dates: start: 20040731
  2. ALBUTEROL SPIROS [Concomitant]
  3. ACETAMINOPHEN [Concomitant]
  4. HALOPERIDOL [Concomitant]
  5. LISINOPRIL [Concomitant]
  6. MAGNESIUM HYDROXIDE TAB [Concomitant]
  7. MAGNESIUM HYDROXIDE/ALUMINUM HYDROXIDE GEL [Concomitant]

REACTIONS (1)
  - GRANULOCYTOPENIA [None]
